FAERS Safety Report 8489784-3 (Version None)
Quarter: 2012Q3

REPORT INFORMATION
  Report Type: 
  Country: None (occurrence: None)
  Receive Date: 20120705
  Receipt Date: 20120627
  Transmission Date: 20120928
  Serious: No
  Sender: FDA-Public Use
  Company Number: US-B.I. PHARMACEUTICALS,INC./RIDGEFIELD-2011-BP-21311BP

PATIENT

DRUGS (1)
  1. TRADJENTA [Suspect]
     Indication: DIABETES MELLITUS

REACTIONS (2)
  - ABDOMINAL PAIN [None]
  - AMYLASE INCREASED [None]
